FAERS Safety Report 4459381-5 (Version None)
Quarter: 2004Q3

REPORT INFORMATION
  Report Type: 
  Country: None (occurrence: None)
  Receive Date: 20040927
  Receipt Date: 20040827
  Transmission Date: 20050211
  Serious: Yes (Other)
  Sender: FDA-Public Use
  Company Number: PHEH2004US09397

PATIENT
  Age: 53 Year
  Sex: Female
  Weight: 73 kg

DRUGS (20)
  1. DIOVAN HCT [Suspect]
     Indication: HYPERTENSION
     Dosage: 1 DF, QD
     Route: 048
     Dates: start: 20040701
  2. DIOVAN HCT [Suspect]
     Dosage: 1 DF, BID
     Route: 048
     Dates: end: 20040821
  3. REQUIP [Concomitant]
  4. QVAR 40 [Concomitant]
  5. AMITRIPTYLINE HCL [Concomitant]
  6. SONATA [Concomitant]
  7. BIDEX [Concomitant]
  8. CLONIDINE HCL [Concomitant]
  9. PREMARIN                                /NEZ/ [Concomitant]
  10. POTASSIUM [Concomitant]
  11. SYNTHROID [Concomitant]
  12. NEURONTIN [Concomitant]
  13. ARAVA [Concomitant]
  14. ZYRTEC [Concomitant]
  15. CELEXA [Concomitant]
  16. MIRALAX [Concomitant]
  17. PRILOSEC [Concomitant]
  18. CALCIUM                                 /N/A/ [Concomitant]
  19. VITAMIN D [Concomitant]
  20. ACUVITE [Concomitant]

REACTIONS (3)
  - BLOOD PRESSURE INCREASED [None]
  - CONVULSION [None]
  - LOWER LIMB FRACTURE [None]
